FAERS Safety Report 6227889-8 (Version None)
Quarter: 2009Q2

REPORT INFORMATION
  Report Type: 
  Country: None (occurrence: None)
  Receive Date: 20090612
  Receipt Date: 20090603
  Transmission Date: 20091009
  Serious: Yes (Hospitalization)
  Sender: FDA-Public Use
  Company Number: B0522964A

PATIENT
  Sex: Male

DRUGS (5)
  1. PAZOPANIB [Suspect]
     Indication: RENAL CANCER
     Dosage: 400MG PER DAY
     Route: 048
     Dates: start: 20080417
  2. TYKERB [Suspect]
     Indication: RENAL CANCER
     Dosage: 1000MG PER DAY
     Route: 048
     Dates: start: 20080417
  3. ACECOL [Concomitant]
     Dosage: 2MG PER DAY
     Route: 048
     Dates: start: 20010101
  4. ALOSITOL [Concomitant]
     Dosage: 100MG PER DAY
     Route: 048
     Dates: start: 20040119
  5. NORVASC [Concomitant]
     Dosage: 5MG PER DAY
     Route: 048
     Dates: start: 20080507

REACTIONS (3)
  - ILEUS [None]
  - INFECTION [None]
  - PERICORONITIS [None]
